FAERS Safety Report 8098066 (Version 3)
Quarter: 2013Q1

REPORT INFORMATION
  Report Type: Spontaneous
  Country: US (occurrence: US)
  Receive Date: 20110819
  Receipt Date: 20130211
  Transmission Date: 20140127
  Serious: Yes (Other)
  Sender: FDA-Public Use
  Company Number: US-ROCHE-797415

PATIENT
  Age: 25 Year
  Sex: Male
  Weight: 81.72 kg

DRUGS (2)
  1. ACCUTANE [Suspect]
     Indication: ACNE
     Route: 048
     Dates: start: 19851023, end: 19860724
  2. ACCUTANE [Suspect]
     Route: 048
     Dates: start: 19901210, end: 19920302

REACTIONS (15)
  - Colitis ulcerative [Unknown]
  - Inflammatory bowel disease [Unknown]
  - Depression [Unknown]
  - Injury [Unknown]
  - Rectal polyp [Unknown]
  - Haemorrhoids [Unknown]
  - Irritable bowel syndrome [Unknown]
  - Xerosis [Unknown]
  - Dermatitis contact [Unknown]
  - Lip dry [Unknown]
  - Epistaxis [Unknown]
  - Blood cholesterol increased [Unknown]
  - Rash [Unknown]
  - Dry skin [Unknown]
  - Seborrhoeic dermatitis [Unknown]
